FAERS Safety Report 23524757 (Version 1)
Quarter: 2024Q1

REPORT INFORMATION
  Report Type: Spontaneous
  Country: US (occurrence: US)
  Receive Date: 20240215
  Receipt Date: 20240215
  Transmission Date: 20240410
  Serious: Yes (Other)
  Sender: FDA-Public Use
  Company Number: US-CHEPLA-2024001861

PATIENT
  Sex: Male
  Weight: 75.3 kg

DRUGS (7)
  1. OLANZAPINE [Suspect]
     Active Substance: OLANZAPINE
     Dosage: FOR 3 DAYS
     Dates: start: 202312, end: 202312
  2. CAPLYTA [Suspect]
     Active Substance: LUMATEPERONE
     Indication: Substance abuse
     Dosage: FOR 14 DAYS
     Route: 048
     Dates: start: 202312, end: 202312
  3. CAPLYTA [Suspect]
     Active Substance: LUMATEPERONE
     Indication: Bipolar disorder
     Dosage: FOR 14 DAYS
     Route: 048
     Dates: start: 202312, end: 202312
  4. CAPLYTA [Suspect]
     Active Substance: LUMATEPERONE
     Indication: Schizoaffective disorder
     Dosage: FOR 14 DAYS
     Route: 048
     Dates: start: 202312, end: 202312
  5. CAPLYTA [Suspect]
     Active Substance: LUMATEPERONE
     Indication: Substance abuse
     Dosage: ONGOING
     Route: 048
     Dates: start: 20240117
  6. CAPLYTA [Suspect]
     Active Substance: LUMATEPERONE
     Indication: Bipolar disorder
     Dosage: ONGOING
     Route: 048
     Dates: start: 20240117
  7. CAPLYTA [Suspect]
     Active Substance: LUMATEPERONE
     Indication: Schizoaffective disorder
     Dosage: ONGOING
     Route: 048
     Dates: start: 20240117

REACTIONS (8)
  - Memory impairment [Not Recovered/Not Resolved]
  - Poor quality sleep [Unknown]
  - Speech disorder [Unknown]
  - Psychotic disorder [Unknown]
  - Restlessness [Unknown]
  - Agitation [Unknown]
  - Insomnia [Unknown]
  - Alcohol abuse [Unknown]
